APPROVED DRUG PRODUCT: THEOPHYLLINE
Active Ingredient: THEOPHYLLINE
Strength: 80MG/15ML
Dosage Form/Route: SOLUTION, ELIXIR;ORAL
Application: A206344 | Product #001
Applicant: PHARMACEUTICAL ASSOCIATES INC
Approved: Dec 16, 2016 | RLD: No | RS: Yes | Type: RX